FAERS Safety Report 21032325 (Version 1)
Quarter: 2022Q3

REPORT INFORMATION
  Report Type: Spontaneous
  Country: None (occurrence: US)
  Receive Date: 20220701
  Receipt Date: 20220701
  Transmission Date: 20221027
  Serious: No
  Sender: FDA-Public Use
  Company Number: US-ITALFARMACO SPA-2130474

PATIENT
  Age: 64 Year
  Sex: Male

DRUGS (10)
  1. TIGLUTIK [Suspect]
     Active Substance: RILUZOLE
     Indication: Amyotrophic lateral sclerosis
     Dates: start: 20210904, end: 20220216
  2. BACLOFEN [Concomitant]
     Active Substance: BACLOFEN
  3. BUPHENYL [Concomitant]
     Active Substance: SODIUM PHENYLBUTYRATE
  4. CLONAZEPAM [Concomitant]
     Active Substance: CLONAZEPAM
  5. FENTANYL [Concomitant]
     Active Substance: FENTANYL
  6. LOSARTAN [Concomitant]
     Active Substance: LOSARTAN
  7. MIRALAX [Concomitant]
     Active Substance: POLYETHYLENE GLYCOL 3350
  8. OXYBUTYNIN. [Concomitant]
     Active Substance: OXYBUTYNIN CHLORIDE
  9. SIMETHICONE (DIMETHICONE) [Concomitant]
     Active Substance: DIMETHICONE
  10. ZOLPIDEM [Concomitant]
     Active Substance: ZOLPIDEM TARTRATE

REACTIONS (1)
  - Ocular icterus [Unknown]

NARRATIVE: CASE EVENT DATE: 20220216
